FAERS Safety Report 9700885 (Version 2)
Quarter: 2013Q4

REPORT INFORMATION
  Report Type: Spontaneous
  Country: JP (occurrence: JP)
  Receive Date: 20131121
  Receipt Date: 20131202
  Transmission Date: 20140711
  Serious: Yes (Hospitalization, Other)
  Sender: FDA-Public Use
  Company Number: JP-PFIZER INC-2013329769

PATIENT
  Age: 73 Year
  Sex: Male

DRUGS (8)
  1. OXYCODONE HYDROCHLORIDE [Suspect]
     Indication: RENAL CANCER
     Dosage: 40 MG, DAILY
     Dates: start: 20120608
  2. OXYCODONE HYDROCHLORIDE [Suspect]
     Indication: PAIN
     Dosage: DOSE WAS INCREASED APPROPRIATELY
  3. OXYCODONE HYDROCHLORIDE [Suspect]
     Dosage: 100 MG, DAILY
     Dates: start: 20120802, end: 20120906
  4. ZOLEDRONIC ACID [Concomitant]
     Dosage: EVERY FOUR WEEKS
  5. SUNITINIB [Concomitant]
     Indication: RENAL CELL CARCINOMA
     Dosage: 2 WEEK ADMINISTRATION AND 2-WEEK WITHDRAWAL
     Dates: start: 20120206
  6. TRAMADOL/ACETAMINOPHEN [Concomitant]
     Indication: PAIN
     Dosage: 1 TABLET QID
     Route: 048
     Dates: start: 20111208, end: 20120608
  7. EVEROLIMUS [Concomitant]
     Indication: RENAL CELL CARCINOMA
     Dosage: 10 MG, DAILY
     Dates: start: 20120530
  8. CELECOX [Concomitant]
     Indication: CANCER PAIN
     Dosage: 200 MG, DAILY
     Route: 048
     Dates: start: 20120514

REACTIONS (1)
  - Ileus paralytic [Recovering/Resolving]
